FAERS Safety Report 13762349 (Version 1)
Quarter: 2017Q3

REPORT INFORMATION
  Report Type: Spontaneous
  Country: US (occurrence: US)
  Receive Date: 20170717
  Receipt Date: 20170717
  Transmission Date: 20171127
  Serious: Yes (Life-Threatening, Hospitalization, Other)
  Sender: FDA-Public Use
  Company Number: None

PATIENT
  Age: 51 Year
  Sex: Female
  Weight: 78.3 kg

DRUGS (12)
  1. MULTIPLE VITAMIN [Concomitant]
     Active Substance: VITAMINS
  2. IP-6 [Concomitant]
  3. L-LYSIENE [Concomitant]
  4. COQ10 [Concomitant]
     Active Substance: UBIDECARENONE
  5. NATURE-THROID [Concomitant]
     Active Substance: THYROID, PORCINE
  6. MSM [Concomitant]
     Active Substance: DIMETHYL SULFONE
  7. VITAMIN D [Concomitant]
     Active Substance: CHOLECALCIFEROL
  8. ADVIL [Concomitant]
     Active Substance: IBUPROFEN
  9. TROPICAMIDE .5% [Suspect]
     Active Substance: TROPICAMIDE
     Indication: OPHTHALMOLOGICAL EXAMINATION
     Dosage: ?          OTHER STRENGTH:GTT;QUANTITY:0.050 DROP(S);OTHER FREQUENCY:ONCE;?
     Route: 047
  10. PROBIOTIC [Concomitant]
     Active Substance: PROBIOTICS NOS
  11. VITAMIN B [Concomitant]
     Active Substance: VITAMIN B
  12. L-GLUTAMINE /00503401/ [Concomitant]
     Active Substance: GLUTAMINE

REACTIONS (8)
  - Fatigue [None]
  - Rib fracture [None]
  - Irritability [None]
  - Visual impairment [None]
  - Confusional state [None]
  - Headache [None]
  - Palpitations [None]
  - Fluid retention [None]

NARRATIVE: CASE EVENT DATE: 20170710
